FAERS Safety Report 10065601 (Version 1)
Quarter: 2014Q2

REPORT INFORMATION
  Report Type: Spontaneous
  Country: US (occurrence: None)
  Receive Date: 20140401
  Receipt Date: 20140401
  Transmission Date: 20141212
  Serious: Yes (Hospitalization, Other)
  Sender: FDA-Public Use
  Company Number: PHEH2013US017982

PATIENT
  Age: 59 Year
  Sex: Male

DRUGS (8)
  1. EXELON PATCH [Suspect]
     Indication: DEMENTIA ALZHEIMER^S TYPE
     Route: 062
     Dates: start: 201211
  2. SIMVASTATIN [Concomitant]
  3. NAMENDA (MEMANTINE HYDROCHLORIDE) [Concomitant]
  4. OLANZAPINE [Concomitant]
  5. VALPROIC ACID [Concomitant]
  6. QUETIAPINE [Concomitant]
  7. ATIVAN (LORAZEPAM) [Concomitant]
  8. MULTI-VIT (VITAMINS NOS) [Concomitant]

REACTIONS (3)
  - Convulsion [None]
  - Aggression [None]
  - Wrong technique in drug usage process [None]
